FAERS Safety Report 11168624 (Version 1)
Quarter: 2015Q2

REPORT INFORMATION
  Report Type: Spontaneous
  Country: SE (occurrence: SE)
  Receive Date: 20150605
  Receipt Date: 20150605
  Transmission Date: 20150821
  Serious: Yes (Other)
  Sender: FDA-Public Use
  Company Number: SE-EISAI MEDICAL RESEARCH-EC-2015-007389

PATIENT
  Age: 41 Year
  Sex: Female

DRUGS (3)
  1. TEGRETOL [Concomitant]
     Active Substance: CARBAMAZEPINE
     Indication: PRODUCT USED FOR UNKNOWN INDICATION
     Dosage: UNKNOWN
  2. ZONEGRAN [Suspect]
     Active Substance: ZONISAMIDE
     Dosage: 250 MG
     Dates: start: 2015, end: 201505
  3. ZONEGRAN [Suspect]
     Active Substance: ZONISAMIDE
     Indication: EPILEPSY
     Dosage: 200 MG
     Dates: start: 20150309, end: 2015

REACTIONS (3)
  - Palpitations [Recovered/Resolved]
  - Tremor [Recovered/Resolved]
  - Muscle spasms [Recovered/Resolved]

NARRATIVE: CASE EVENT DATE: 20150415
